FAERS Safety Report 8019799-0 (Version None)
Quarter: 2012Q2

REPORT INFORMATION
  Report Type: 
  Country: None (occurrence: None)
  Receive Date: 20120103
  Receipt Date: 20111230
  Transmission Date: 20120825
  Serious: Yes (Life-Threatening, Hospitalization)
  Sender: FDA-Public Use
  Company Number: FR-PFIZER INC-2011291744

PATIENT
  Age: 61 Year
  Sex: Male

DRUGS (5)
  1. PROPRANOLOL [Suspect]
     Dosage: UNKNOWN
     Route: 048
  2. METFORMIN HCL [Suspect]
     Indication: TYPE 2 DIABETES MELLITUS
     Dosage: UNK
     Route: 048
     Dates: end: 20110924
  3. PREDNISOLONE [Suspect]
     Dosage: 20 MG, 1X/DAY
     Route: 048
  4. VALSARTAN  AND HYDROCHLOROTHIAZIDE [Suspect]
     Dosage: UNKNOWN
     Route: 048
  5. ALDACTONE [Suspect]
     Dosage: UNKNOWN
     Route: 048

REACTIONS (2)
  - SEPTIC SHOCK [None]
  - RENAL FAILURE ACUTE [None]
